FAERS Safety Report 16405376 (Version 1)
Quarter: 2019Q2

REPORT INFORMATION
  Report Type: Spontaneous
  Country: AU (occurrence: AU)
  Receive Date: 20190607
  Receipt Date: 20190607
  Transmission Date: 20190711
  Serious: Yes (Hospitalization, Other)
  Sender: FDA-Public Use
  Company Number: AU-009507513-1905AUS014089

PATIENT
  Age: 67 Year
  Sex: Male

DRUGS (5)
  1. ACETAMINOPHEN. [Suspect]
     Active Substance: ACETAMINOPHEN
     Indication: OSTEOARTHRITIS
     Dosage: UNK
  2. BISOPROLOL [Suspect]
     Active Substance: BISOPROLOL
     Dosage: UNK
  3. SIMVASTATIN. [Suspect]
     Active Substance: SIMVASTATIN
     Dosage: UNK
     Route: 048
  4. CLOPIDOGREL [Suspect]
     Active Substance: CLOPIDOGREL BISULFATE
     Dosage: UNK
  5. RAMIPRIL. [Suspect]
     Active Substance: RAMIPRIL
     Dosage: UNK

REACTIONS (10)
  - Blood glucose fluctuation [Unknown]
  - Haemoglobin decreased [Unknown]
  - Bacterial test positive [Unknown]
  - Ureteric obstruction [Unknown]
  - Kidney infection [Unknown]
  - Pyelonephritis [Unknown]
  - Sepsis [Unknown]
  - Haemodynamic instability [Unknown]
  - Ureterolithiasis [Unknown]
  - Escherichia test positive [Unknown]
